FAERS Safety Report 6241506-2 (Version None)
Quarter: 2009Q2

REPORT INFORMATION
  Report Type: 
  Country: None (occurrence: None)
  Receive Date: 20090623
  Receipt Date: 20031218
  Transmission Date: 20091009
  Serious: Yes (Hospitalization)
  Sender: FDA-Public Use
  Company Number: DE-ROCHE-354373

PATIENT
  Sex: Male
  Weight: 73 kg

DRUGS (82)
  1. DACLIZUMAB [Suspect]
     Dosage: BASELINE VISIT.
     Route: 042
     Dates: start: 20030816
  2. DACLIZUMAB [Suspect]
     Dosage: ROUTE AND FORMULATION PER PROTOCOL.
     Route: 042
     Dates: start: 20030830, end: 20031009
  3. MYCOPHENOLATE MOFETIL [Suspect]
     Route: 048
     Dates: start: 20030815
  4. MYCOPHENOLATE MOFETIL [Suspect]
     Route: 048
     Dates: start: 20030816
  5. MYCOPHENOLATE MOFETIL [Suspect]
     Route: 048
     Dates: start: 20030920
  6. MYCOPHENOLATE MOFETIL [Suspect]
     Route: 048
     Dates: start: 20031230, end: 20040113
  7. CYCLOSPORINE [Suspect]
     Route: 048
     Dates: start: 20030815, end: 20030819
  8. CYCLOSPORINE [Suspect]
     Route: 048
     Dates: start: 20030820
  9. CYCLOSPORINE [Suspect]
     Route: 048
     Dates: start: 20030910
  10. CYCLOSPORINE [Suspect]
     Route: 048
     Dates: start: 20031023
  11. CYCLOSPORINE [Suspect]
     Route: 048
     Dates: start: 20031203
  12. CYCLOSPORINE [Suspect]
     Route: 048
     Dates: start: 20031205
  13. CYCLOSPORINE [Suspect]
     Route: 048
     Dates: start: 20031217, end: 20031222
  14. TACROLIMUS [Suspect]
     Route: 048
     Dates: start: 20031222, end: 20031229
  15. TACROLIMUS [Suspect]
     Route: 048
     Dates: start: 20031230, end: 20040113
  16. TACROLIMUS [Suspect]
     Route: 048
     Dates: start: 20040114
  17. TACROLIMUS [Suspect]
     Route: 048
     Dates: start: 20040128, end: 20040614
  18. TACROLIMUS [Suspect]
     Route: 048
     Dates: start: 20040615, end: 20040616
  19. TACROLIMUS [Suspect]
     Route: 048
     Dates: start: 20040617
  20. TACROLIMUS [Suspect]
     Route: 048
     Dates: start: 20040714, end: 20040824
  21. TACROLIMUS [Suspect]
     Route: 048
     Dates: start: 20040825, end: 20041114
  22. TACROLIMUS [Suspect]
     Route: 048
     Dates: start: 20041115
  23. TACROLIMUS [Suspect]
     Route: 048
     Dates: start: 20050202
  24. TACROLIMUS [Suspect]
     Dosage: FORMULATION REPORTED AS: SYRPED.
     Route: 048
     Dates: start: 20050202
  25. MYCOPHENOLATE SODIUM [Suspect]
     Dosage: DRUG NAME REPORTED AS: MYCOFENOLAT-NA.
     Route: 048
     Dates: start: 20040114
  26. METHYLPREDNISOLONE [Suspect]
     Route: 042
     Dates: start: 20030815, end: 20030817
  27. METHYLPREDNISOLONE [Suspect]
     Route: 042
     Dates: start: 20031117, end: 20031121
  28. METHYLPREDNISOLONE [Suspect]
     Route: 042
     Dates: start: 20031219, end: 20041223
  29. METHYLPREDNISOLONE [Suspect]
     Route: 042
     Dates: start: 20050202, end: 20050204
  30. METHYLPREDNISOLONE [Suspect]
     Route: 048
     Dates: start: 20030818, end: 20030823
  31. METHYLPREDNISOLONE [Suspect]
     Route: 048
     Dates: start: 20030824, end: 20030828
  32. METHYLPREDNISOLONE [Suspect]
     Route: 048
     Dates: start: 20030829, end: 20030902
  33. METHYLPREDNISOLONE [Suspect]
     Route: 048
     Dates: start: 20030903, end: 20030907
  34. METHYLPREDNISOLONE [Suspect]
     Route: 048
     Dates: start: 20030908, end: 20030913
  35. METHYLPREDNISOLONE [Suspect]
     Route: 048
     Dates: start: 20030914
  36. METHYLPREDNISOLONE [Suspect]
     Route: 048
     Dates: start: 20031122
  37. METHYLPREDNISOLONE [Suspect]
     Route: 048
     Dates: start: 20041224
  38. METHYLPREDNISOLONE [Suspect]
     Route: 048
     Dates: start: 20051205
  39. ATORVASTATIN CALCIUM [Concomitant]
     Route: 048
     Dates: start: 20030911, end: 20031008
  40. ATORVASTATIN CALCIUM [Concomitant]
     Route: 048
     Dates: start: 20031009, end: 20040615
  41. ATORVASTATIN CALCIUM [Concomitant]
     Route: 048
     Dates: start: 20040825
  42. RANITIDINE HCL [Concomitant]
     Route: 048
     Dates: start: 20030815
  43. CALCIUM CARBONATE [Concomitant]
     Dosage: REDUCED TO 3 GRAM DAILY ON 19 DECEMBER 2003.
     Route: 048
     Dates: start: 20030908
  44. CALCIUM CARBONATE [Concomitant]
     Route: 048
     Dates: start: 20050204
  45. METOPROLOL SUCCINATE [Concomitant]
     Route: 048
     Dates: start: 20030815, end: 20031023
  46. METOPROLOL SUCCINATE [Concomitant]
     Route: 048
     Dates: start: 20031024, end: 20031202
  47. METOPROLOL SUCCINATE [Concomitant]
     Route: 048
     Dates: start: 20031203
  48. METOPROLOL SUCCINATE [Concomitant]
     Route: 048
     Dates: start: 20031217, end: 20040127
  49. METOPROLOL SUCCINATE [Concomitant]
     Route: 048
     Dates: start: 20040128
  50. METOPROLOL SUCCINATE [Concomitant]
     Route: 048
     Dates: start: 20040615
  51. METOPROLOL SUCCINATE [Concomitant]
     Route: 048
     Dates: start: 20040714
  52. METOPROLOL SUCCINATE [Concomitant]
     Route: 048
     Dates: start: 20040825
  53. LOSARTAN POTASSIUM [Concomitant]
     Route: 048
     Dates: start: 20030815, end: 20031218
  54. ENALAPRIL [Concomitant]
     Route: 048
     Dates: start: 20031024, end: 20031221
  55. ENALAPRIL [Concomitant]
     Route: 048
     Dates: start: 20040825
  56. PENTOXIFYLLINE [Concomitant]
  57. CALCITRIOL [Concomitant]
     Route: 048
     Dates: start: 20031009, end: 20031229
  58. CANDESARTAN [Concomitant]
     Route: 048
     Dates: start: 20031217, end: 20031230
  59. CANDESARTAN [Concomitant]
     Route: 048
     Dates: start: 20031231, end: 20040125
  60. CANDESARTAN [Concomitant]
     Route: 048
     Dates: start: 20040126, end: 20040615
  61. CANDESARTAN [Concomitant]
     Route: 048
     Dates: start: 20040616, end: 20040714
  62. CANDESARTAN [Concomitant]
     Route: 048
     Dates: start: 20040715
  63. NADROPARIN [Concomitant]
     Route: 058
     Dates: start: 20031219
  64. NADROPARIN [Concomitant]
     Route: 058
     Dates: start: 20031220, end: 20040104
  65. NADROPARIN [Concomitant]
     Route: 058
     Dates: start: 20040105, end: 20040219
  66. ACYCLOVIR [Concomitant]
     Route: 048
     Dates: start: 20030820, end: 20030905
  67. AMPHOTERICIN B [Concomitant]
     Route: 048
     Dates: start: 20030815, end: 20030909
  68. BISOPROLOL [Concomitant]
     Route: 048
     Dates: start: 20031023, end: 20031203
  69. CIPROFLOXACIN [Concomitant]
     Route: 048
     Dates: start: 20030815, end: 20030816
  70. CIPROFLOXACIN [Concomitant]
     Route: 048
     Dates: start: 20030911, end: 20031010
  71. CIPROFLOXACIN [Concomitant]
     Dosage: DRUG NAME REPORTED AS: CIPROFLOXIN.
     Route: 048
     Dates: start: 20040101, end: 20040106
  72. COTRIM [Concomitant]
     Route: 048
     Dates: start: 20030818, end: 20030906
  73. TORSEMIDE [Concomitant]
     Route: 048
     Dates: start: 20031023, end: 20031204
  74. NATRIUM BICARBONAT [Concomitant]
     Dates: start: 20050202
  75. FOLIGAN [Concomitant]
     Dates: start: 20050202
  76. ENALAPRIL MALEATE [Concomitant]
     Dates: start: 20040825
  77. SORTIS [Concomitant]
     Dates: start: 20040825
  78. PANTOZOL [Concomitant]
     Dates: start: 20050202
  79. BELOC-ZOK [Concomitant]
     Dates: start: 20050202
  80. ATACAND [Concomitant]
     Dates: start: 20050202
  81. FRAXIPARIN [Concomitant]
     Dates: start: 20050202, end: 20050209
  82. DECOSTRIOL [Concomitant]
     Dates: start: 20050202

REACTIONS (3)
  - BLOOD CREATININE INCREASED [None]
  - DIARRHOEA [None]
  - RENAL ARTERY STENOSIS [None]
